FAERS Safety Report 8436745-6 (Version None)
Quarter: 2012Q2

REPORT INFORMATION
  Report Type: 
  Country: None (occurrence: None)
  Receive Date: 20120614
  Receipt Date: 20120605
  Transmission Date: 20120825
  Serious: Yes (Hospitalization)
  Sender: FDA-Public Use
  Company Number: US-B.I. PHARMACEUTICALS,INC./RIDGEFIELD-2012-BP-13106BP

PATIENT
  Sex: Female
  Weight: 99.5 kg

DRUGS (5)
  1. MIRAPEX [Suspect]
     Indication: RESTLESS LEGS SYNDROME
     Dosage: 1 MG
     Dates: start: 20070101
  2. CINRYZE [Concomitant]
     Dates: start: 20110719
  3. METFORMIN HCL [Concomitant]
     Dates: start: 20070101
  4. ATENOLOL [Concomitant]
     Dates: start: 20070101
  5. KALBITOR [Suspect]
     Indication: HEREDITARY ANGIOEDEMA
     Dosage: 30 MG
     Route: 058
     Dates: start: 20120507, end: 20120507

REACTIONS (8)
  - DEHYDRATION [None]
  - BLOOD GLUCOSE INCREASED [None]
  - DIABETES MELLITUS INADEQUATE CONTROL [None]
  - SUDDEN ONSET OF SLEEP [None]
  - VISION BLURRED [None]
  - HEREDITARY ANGIOEDEMA [None]
  - BLOOD POTASSIUM DECREASED [None]
  - VISUAL ACUITY REDUCED [None]
